FAERS Safety Report 7652559 (Version 6)
Quarter: 2012Q4

REPORT INFORMATION
  Report Type: 
  Country: ES (occurrence: ES)
  Receive Date: 20101101
  Receipt Date: 20120925
  Transmission Date: 20130627
  Serious: Yes (Hospitalization)
  Sender: FDA-Public Use
  Company Number: ES-ALEXION-A201001347

PATIENT

DRUGS (4)
  1. SOLIRIS 300MG [Suspect]
     Indication: PAROXYSMAL NOCTURNAL HAEMOGLOBINURIA
     Dosage: 600 mg, qw
     Route: 042
     Dates: start: 200803
  2. SOLIRIS 300MG [Suspect]
     Dosage: 900 mg, q2w
     Route: 042
     Dates: end: 20101005
  3. FOLIC ACID [Concomitant]
  4. PANTOPRAZOLE [Concomitant]

REACTIONS (6)
  - Vasculitis [Recovering/Resolving]
  - Arthritis [Recovering/Resolving]
  - Meningococcal infection [Recovering/Resolving]
  - Sepsis [Recovering/Resolving]
  - Haemolysis [Not Recovered/Not Resolved]
  - Haemoglobin decreased [Unknown]
